FAERS Safety Report 25792825 (Version 1)
Quarter: 2025Q3

REPORT INFORMATION
  Report Type: Spontaneous
  Country: EU (occurrence: EU)
  Receive Date: 20250911
  Receipt Date: 20250911
  Transmission Date: 20251020
  Serious: Yes (Other)
  Sender: AMGEN
  Company Number: EU-AMGEN-GRCSP2025175604

PATIENT

DRUGS (1)
  1. ROMIPLOSTIM [Suspect]
     Active Substance: ROMIPLOSTIM
     Indication: Immune thrombocytopenia
     Route: 065

REACTIONS (7)
  - Autoimmune thyroiditis [Unknown]
  - Interstitial lung disease [Unknown]
  - Immune thrombocytopenia [Unknown]
  - Hypertransaminasaemia [Unknown]
  - Lymphadenopathy [Unknown]
  - Sacroiliitis [Unknown]
  - Liver-kidney microsomal antibody positive [Unknown]
